FAERS Safety Report 22179853 (Version 3)
Quarter: 2023Q4

REPORT INFORMATION
  Report Type: Report from Study
  Country: US (occurrence: US)
  Receive Date: 20230406
  Receipt Date: 20231221
  Transmission Date: 20240109
  Serious: Yes (Death, Hospitalization)
  Sender: FDA-Public Use
  Company Number: US-ABBVIE-4304425

PATIENT
  Age: 71 Year
  Sex: Female

DRUGS (3)
  1. VENCLEXTA [Suspect]
     Active Substance: VENETOCLAX
     Indication: Plasma cell myeloma
     Dosage: FORM STRENGTH: 100 MG? TAKING 2 PILLS A DAY FOR 2 DAYS THEN INCREASED TO 4 PILLS A DAY
     Route: 048
     Dates: start: 20230316, end: 20230317
  2. VENCLEXTA [Suspect]
     Active Substance: VENETOCLAX
     Indication: Plasma cell myeloma
     Dosage: FORM STRENGTH: 100 MG?START DATE-2023?TAKING 2 PILLS A DAY FOR 2 DAYS THEN INCREASED TO 4 PILLS A...
     Route: 048
  3. VENCLEXTA [Suspect]
     Active Substance: VENETOCLAX
     Indication: Plasma cell myeloma
     Dosage: STRENGTH- 100MG
     Route: 048

REACTIONS (5)
  - Death [Fatal]
  - Off label use [Unknown]
  - Full blood count abnormal [Unknown]
  - Cerebrovascular accident [Recovered/Resolved]
  - Pneumonia [Recovered/Resolved]

NARRATIVE: CASE EVENT DATE: 20230606
